FAERS Safety Report 5030848-4 (Version None)
Quarter: 2006Q2

REPORT INFORMATION
  Report Type: 
  Country: None (occurrence: None)
  Receive Date: 20060504
  Receipt Date: 20060211
  Transmission Date: 20061013
  Serious: No
  Sender: FDA-Public Use
  Company Number: 200610885BWH

PATIENT
  Sex: Male

DRUGS (3)
  1. LEVITRA [Suspect]
     Dosage: 10 MG, ONCE, ORAL
     Route: 048
  2. FISH OIL [Concomitant]
  3. OMEGA 3 FATTY ACIDS [Concomitant]

REACTIONS (2)
  - DRUG INEFFECTIVE [None]
  - NASAL CONGESTION [None]
